FAERS Safety Report 17243973 (Version 1)
Quarter: 2020Q1

REPORT INFORMATION
  Report Type: Spontaneous
  Country: CN (occurrence: CN)
  Receive Date: 20200107
  Receipt Date: 20200107
  Transmission Date: 20200409
  Serious: Yes (Other)
  Sender: FDA-Public Use
  Company Number: CN-PFIZER INC-2020004279

PATIENT
  Age: 81 Year
  Sex: Male

DRUGS (1)
  1. MEROPENEM. [Suspect]
     Active Substance: MEROPENEM
     Indication: ANTI-INFECTIVE THERAPY
     Dosage: UNK
     Dates: start: 20191215

REACTIONS (5)
  - Activated partial thromboplastin time prolonged [Recovering/Resolving]
  - Prothrombin level decreased [Recovering/Resolving]
  - International normalised ratio increased [Recovering/Resolving]
  - Prothrombin time prolonged [Recovering/Resolving]
  - Prothrombin time ratio increased [Recovering/Resolving]

NARRATIVE: CASE EVENT DATE: 20191215
